FAERS Safety Report 25890082 (Version 1)
Quarter: 2025Q4

REPORT INFORMATION
  Report Type: Spontaneous
  Country: EU (occurrence: EU)
  Receive Date: 20251007
  Receipt Date: 20251007
  Transmission Date: 20260118
  Serious: Yes (Other)
  Sender: RANBAXY
  Company Number: EU-URPL-DML-MLP.4401.2.12329.2021

PATIENT
  Age: 24 Year
  Sex: Male

DRUGS (2)
  1. PREGABALIN [Suspect]
     Active Substance: PREGABALIN
     Indication: Generalised anxiety disorder
     Dosage: THE DRUG HAS BEEN USED FOR 3 YEARS; ONGOING THERAPY; CHANGE OF DOSE FROM 75 MG TO 150 MG 2 X 1. WHEN
     Route: 048
  2. PROPRANOLOL [Concomitant]
     Active Substance: PROPRANOLOL HYDROCHLORIDE
     Indication: Product used for unknown indication
     Dosage: OCCASIONALLY TAKEN
     Route: 065

REACTIONS (11)
  - Neurosis [Not Recovered/Not Resolved]
  - Depression [Not Recovered/Not Resolved]
  - Depressed mood [Not Recovered/Not Resolved]
  - Memory impairment [Not Recovered/Not Resolved]
  - Somatic symptom disorder [Not Recovered/Not Resolved]
  - Anxiety [Not Recovered/Not Resolved]
  - Dysgraphia [Not Recovered/Not Resolved]
  - Disturbance in attention [Not Recovered/Not Resolved]
  - Mood swings [Not Recovered/Not Resolved]
  - Tremor [Not Recovered/Not Resolved]
  - Cold sweat [Not Recovered/Not Resolved]
